FAERS Safety Report 7633251-3 (Version None)
Quarter: 2011Q3

REPORT INFORMATION
  Report Type: 
  Country: None (occurrence: None)
  Receive Date: 20110725
  Receipt Date: 20110718
  Transmission Date: 20111222
  Serious: Yes (Death)
  Sender: FDA-Public Use
  Company Number: AU-ROCHE-788563

PATIENT
  Age: 28 Year

DRUGS (7)
  1. METHADON AMIDONE HCL TAB [Suspect]
     Route: 065
  2. ACETAMINOPHEN [Suspect]
     Route: 065
  3. TEMAZEPAM [Suspect]
     Route: 065
  4. CLONAZEPAM [Suspect]
     Route: 065
  5. CODEINE SULFATE [Suspect]
     Route: 065
  6. DIAZEPAM [Suspect]
     Route: 065
  7. VENLAFAXINE [Suspect]
     Route: 065

REACTIONS (6)
  - ACCIDENTAL POISONING [None]
  - TOXICITY TO VARIOUS AGENTS [None]
  - RESPIRATORY DEPRESSION [None]
  - SOMNOLENCE [None]
  - SNORING [None]
  - ACCIDENTAL OVERDOSE [None]
